FAERS Safety Report 4896477-8 (Version None)
Quarter: 2006Q1

REPORT INFORMATION
  Report Type: 
  Country: None (occurrence: None)
  Receive Date: 20060126
  Receipt Date: 20060113
  Transmission Date: 20060701
  Serious: Yes (Hospitalization)
  Sender: FDA-Public Use
  Company Number: A-US2004-05319

PATIENT
  Age: 33 Year
  Sex: Female

DRUGS (7)
  1. TRACLEER [Suspect]
     Indication: PULMONARY HYPERTENSION
     Dosage: ORAL
     Route: 048
  2. CHOLESTYRAMINE [Suspect]
  3. COREG (CARVEDIOL) [Concomitant]
  4. SPIRONOLACTONE [Concomitant]
  5. LASIX [Concomitant]
  6. VALSARTAN [Concomitant]
  7. OXYGEN (OXYGEN) [Concomitant]

REACTIONS (18)
  - ABDOMINAL DISTENSION [None]
  - ABDOMINAL PAIN [None]
  - CARDIAC MURMUR [None]
  - DYSPNOEA [None]
  - DYSPNOEA PAROXYSMAL NOCTURNAL [None]
  - HEPATIC CONGESTION [None]
  - HYPOTENSION [None]
  - JUGULAR VEIN DISTENSION [None]
  - NAUSEA [None]
  - OEDEMA PERIPHERAL [None]
  - ORTHOPNOEA [None]
  - PAIN [None]
  - PITTING OEDEMA [None]
  - PORTAL HYPERTENSION [None]
  - PRURITUS [None]
  - RENAL FAILURE ACUTE [None]
  - URINARY TRACT INFECTION [None]
  - VOMITING [None]
